FAERS Safety Report 18812614 (Version 1)
Quarter: 2021Q1

REPORT INFORMATION
  Report Type: Report from Study
  Country: BR (occurrence: BR)
  Receive Date: 20210130
  Receipt Date: 20210130
  Transmission Date: 20210419
  Serious: Yes (Other)
  Sender: FDA-Public Use
  Company Number: NVSC2021BR018270

PATIENT
  Sex: Male

DRUGS (2)
  1. EXELON [Suspect]
     Active Substance: RIVASTIGMINE TARTRATE
     Indication: PRODUCT USED FOR UNKNOWN INDICATION
     Dosage: STARTED APROXIMATELY 2 YEARS AGO
     Route: 065
  2. EXELON [Suspect]
     Active Substance: RIVASTIGMINE TARTRATE
     Indication: PRODUCT USED FOR UNKNOWN INDICATION
     Dosage: 4.6 MG (5 CM2) (LOADED WITH 9 MG RIVASTIGMINE/DAILY DOSE
     Route: 062

REACTIONS (5)
  - Decreased appetite [Unknown]
  - Adverse event [Unknown]
  - Constipation [Unknown]
  - Nausea [Unknown]
  - Dementia Alzheimer^s type [Unknown]
